FAERS Safety Report 4765556-8 (Version None)
Quarter: 2005Q3

REPORT INFORMATION
  Report Type: 
  Country: None (occurrence: None)
  Receive Date: 20050906
  Receipt Date: 20050825
  Transmission Date: 20060218
  Serious: Yes (Other)
  Sender: FDA-Public Use
  Company Number: 2005-08-1758

PATIENT
  Age: 31 Year
  Sex: Female

DRUGS (2)
  1. BETAMETHASONE DIPROPIONATE [Suspect]
     Indication: ARTHROPATHY
     Dosage: 1 DOSE (S)
  2. ALTIM INJECTABLE ^LIKE CELESTONE SOLUSPAN^ [Suspect]
     Indication: ARTHROPATHY
     Dosage: 1 DOSE (S)

REACTIONS (3)
  - LOSS OF CONSCIOUSNESS [None]
  - MALAISE [None]
  - URTICARIA [None]
